FAERS Safety Report 7308018-6 (Version None)
Quarter: 2011Q1

REPORT INFORMATION
  Report Type: 
  Country: None (occurrence: None)
  Receive Date: 20110223
  Receipt Date: 20110214
  Transmission Date: 20110831
  Serious: Yes (Other)
  Sender: FDA-Public Use
  Company Number: US-ROCHE-734209

PATIENT
  Sex: Male
  Weight: 92.1 kg

DRUGS (3)
  1. ACCUTANE [Suspect]
     Indication: ACNE
     Route: 065
     Dates: start: 19990901, end: 20000401
  2. ACCUTANE [Suspect]
     Route: 065
     Dates: start: 20011109, end: 20011210
  3. ACCUTANE [Suspect]
     Route: 065
     Dates: start: 20001127, end: 20011008

REACTIONS (7)
  - GASTROINTESTINAL INJURY [None]
  - DRY SKIN [None]
  - DEPRESSION [None]
  - COLITIS ULCERATIVE [None]
  - ANAL FISSURE [None]
  - INFLAMMATORY BOWEL DISEASE [None]
  - LIP DRY [None]
